FAERS Safety Report 17899146 (Version 1)
Quarter: 2020Q2

REPORT INFORMATION
  Report Type: Spontaneous
  Country: US (occurrence: US)
  Receive Date: 20200616
  Receipt Date: 20200616
  Transmission Date: 20200714
  Serious: Yes (Death, Other)
  Sender: FDA-Public Use
  Company Number: US-SA-2020SA153789

PATIENT

DRUGS (1)
  1. ZANTAC [Suspect]
     Active Substance: RANITIDINE HYDROCHLORIDE
     Dosage: UNK UNK,UNK
     Route: 065
     Dates: start: 2012, end: 2018

REACTIONS (1)
  - Gastric cancer [Fatal]

NARRATIVE: CASE EVENT DATE: 201608
